FAERS Safety Report 24376674 (Version 1)
Quarter: 2024Q3

REPORT INFORMATION
  Report Type: Report from Study
  Country: CO (occurrence: CO)
  Receive Date: 20240930
  Receipt Date: 20240930
  Transmission Date: 20241017
  Serious: Yes (Other)
  Sender: ALEXION PHARMACEUTICALS
  Company Number: CO-AstraZeneca-CH-00710920A

PATIENT
  Age: 11 Year
  Weight: 27 kg

DRUGS (4)
  1. STRENSIQ [Suspect]
     Active Substance: ASFOTASE ALFA
     Indication: Hypophosphatasia
     Dosage: 40 MILLIGRAM, TIW
  2. STRENSIQ [Suspect]
     Active Substance: ASFOTASE ALFA
     Dosage: 40 MILLIGRAM, TIW
  3. STRENSIQ [Suspect]
     Active Substance: ASFOTASE ALFA
     Dosage: 40 MILLIGRAM, TIW
  4. STRENSIQ [Suspect]
     Active Substance: ASFOTASE ALFA
     Dosage: 40 MILLIGRAM, TIW

REACTIONS (6)
  - Choking [Recovering/Resolving]
  - Sleep disorder [Recovering/Resolving]
  - Suffocation feeling [Recovering/Resolving]
  - Slow speech [Recovering/Resolving]
  - Chest discomfort [Recovering/Resolving]
  - Crying [Recovering/Resolving]
